FAERS Safety Report 7228995-1 (Version None)
Quarter: 2011Q1

REPORT INFORMATION
  Report Type: 
  Country: None (occurrence: None)
  Receive Date: 20110117
  Receipt Date: 20110104
  Transmission Date: 20110831
  Serious: Yes (Other)
  Sender: FDA-Public Use
  Company Number: PHHY2010CA19473

PATIENT
  Sex: Female

DRUGS (3)
  1. CALCIUM [Concomitant]
     Dosage: 1000 MG
  2. ACLASTA/ZOLEDRONATE [Suspect]
     Indication: OSTEOPOROSIS
     Dosage: 5 MG, UNK
     Route: 042
     Dates: start: 20091217
  3. VITAMIN D [Concomitant]
     Dosage: 800 IU

REACTIONS (4)
  - FALL [None]
  - FOOT FRACTURE [None]
  - SKELETAL INJURY [None]
  - RIB FRACTURE [None]
